FAERS Safety Report 5622706-9 (Version None)
Quarter: 2008Q1

REPORT INFORMATION
  Report Type: 
  Country: None (occurrence: None)
  Receive Date: 20080208
  Receipt Date: 20080208
  Transmission Date: 20080703
  Serious: No
  Sender: FDA-Public Use
  Company Number: None

PATIENT
  Age: 29 Year
  Sex: Male

DRUGS (1)
  1. CITALOPRAM HYDROBROMIDE [Suspect]
     Indication: DEPRESSION
     Dosage: 5MG  EVERY DAY  PO
     Route: 048
     Dates: start: 20010809, end: 20071004

REACTIONS (2)
  - BRUXISM [None]
  - GASTROINTESTINAL DISORDER [None]
